FAERS Safety Report 23558058 (Version 1)
Quarter: 2024Q1

REPORT INFORMATION
  Report Type: Spontaneous
  Country: US (occurrence: US)
  Receive Date: 20240223
  Receipt Date: 20240223
  Transmission Date: 20240410
  Serious: Yes (Other)
  Sender: FDA-Public Use
  Company Number: US-BRISTOL-MYERS SQUIBB COMPANY-2024-024766

PATIENT
  Age: 64 Year
  Sex: Male

DRUGS (1)
  1. REVLIMID [Suspect]
     Active Substance: LENALIDOMIDE
     Indication: Plasma cell myeloma
     Dosage: TAKE 1 CAPSULE BY MOUTH DAILY FOR 21 DAYS ON FOLLOWED BY 7 DAYS OF
     Route: 048

REACTIONS (14)
  - Inability to afford medication [Recovering/Resolving]
  - Squamous cell carcinoma of skin [Unknown]
  - Platelet count decreased [Unknown]
  - Bone pain [Unknown]
  - Muscle spasms [Unknown]
  - Chondropathy [Unknown]
  - Arthritis [Unknown]
  - Dyspnoea [Unknown]
  - Ageusia [Unknown]
  - Weight decreased [Unknown]
  - Nausea [Unknown]
  - Diarrhoea [Unknown]
  - Type 2 diabetes mellitus [Unknown]
  - Pain [Unknown]
